FAERS Safety Report 21461643 (Version 2)
Quarter: 2022Q4

REPORT INFORMATION
  Report Type: Report from Study
  Country: US (occurrence: US)
  Receive Date: 20221015
  Receipt Date: 20221101
  Transmission Date: 20230112
  Serious: No
  Sender: FDA-Public Use
  Company Number: US-ABBVIE-4144566

PATIENT
  Sex: Female

DRUGS (1)
  1. HUMIRA [Suspect]
     Active Substance: ADALIMUMAB
     Indication: Rheumatoid arthritis
     Dosage: CF PEN, STRENGTH- 40 MG?OFF HUMIRA FOR SEVERAL MONTHS
     Route: 058

REACTIONS (3)
  - Pain [Unknown]
  - Arthralgia [Unknown]
  - General symptom [Unknown]
